FAERS Safety Report 6061900-2 (Version None)
Quarter: 2009Q1

REPORT INFORMATION
  Report Type: 
  Country: None (occurrence: None)
  Receive Date: 20090202
  Receipt Date: 20090121
  Transmission Date: 20090719
  Serious: Yes (Other)
  Sender: FDA-Public Use
  Company Number: PHFR2008GB01301

PATIENT
  Sex: Male

DRUGS (6)
  1. CLOZARIL [Suspect]
     Indication: SCHIZOPHRENIA
     Dosage: 500MG/DAY
     Dates: start: 19960603
  2. PAROXETINE HCL [Concomitant]
     Indication: DEPRESSION
     Dosage: 20MG / DAY
     Route: 048
     Dates: start: 20060101
  3. OMEGA-3 ACID ETHYL ESTERS [Concomitant]
     Route: 048
     Dates: start: 20060101
  4. TETRABENAZINE [Concomitant]
     Indication: MOVEMENT DISORDER
     Dosage: 12.5 MG, BID
     Route: 048
  5. CLONAZEPAM [Concomitant]
     Dosage: 10 MG, BID
     Route: 048
  6. HYOSCINE HBR HYT [Concomitant]
     Indication: SALIVARY HYPERSECRETION
     Dosage: 300 UG, BID
     Route: 048

REACTIONS (4)
  - ELECTROCARDIOGRAM ABNORMAL [None]
  - LEFT VENTRICULAR DYSFUNCTION [None]
  - MYOCARDIAL ISCHAEMIA [None]
  - SINUS TACHYCARDIA [None]
